FAERS Safety Report 4960575-0 (Version None)
Quarter: 2006Q1

REPORT INFORMATION
  Report Type: 
  Country: None (occurrence: None)
  Receive Date: 20060331
  Receipt Date: 20060331
  Transmission Date: 20060701
  Serious: Yes (Disabling)
  Sender: FDA-Public Use
  Company Number: None

PATIENT

DRUGS (3)
  1. KENALOG-40 [Suspect]
     Indication: CATARACT OPERATION
     Dosage: 40 MG PER ML [ONE TIME USE]
     Dates: start: 20060307
  2. ALCON [Concomitant]
  3. BD  60 ML SYRINGE [Concomitant]

REACTIONS (4)
  - ENDOPHTHALMITIS [None]
  - EYE OPERATION COMPLICATION [None]
  - POSTOPERATIVE INFECTION [None]
  - STREPTOCOCCAL INFECTION [None]
